FAERS Safety Report 22201997 (Version 2)
Quarter: 2023Q2

REPORT INFORMATION
  Report Type: Spontaneous
  Country: JP (occurrence: JP)
  Receive Date: 20230412
  Receipt Date: 20230516
  Transmission Date: 20230721
  Serious: Yes (Death, Other)
  Sender: FDA-Public Use
  Company Number: JP-OTSUKA-2023_007133AA

PATIENT
  Age: 75 Year
  Sex: Male

DRUGS (18)
  1. SAMSCA [Suspect]
     Active Substance: TOLVAPTAN
     Indication: Cardiac failure congestive
     Dosage: UNK
     Route: 048
     Dates: start: 202212
  2. SAMSCA [Suspect]
     Active Substance: TOLVAPTAN
     Dosage: UNK
     Route: 048
     Dates: start: 20221125
  3. TOLVAPTAN [Suspect]
     Active Substance: TOLVAPTAN
     Indication: Cardiac failure congestive
     Dosage: 8 MG/DAY
     Route: 041
     Dates: start: 20221206, end: 20221206
  4. TOLVAPTAN [Suspect]
     Active Substance: TOLVAPTAN
     Indication: Pleural effusion
     Dosage: 8 MG/DAY
     Route: 041
     Dates: start: 20221213, end: 20221215
  5. TOLVAPTAN [Suspect]
     Active Substance: TOLVAPTAN
     Indication: Cardiac failure
  6. FUROSEMIDE [Concomitant]
     Active Substance: FUROSEMIDE
     Indication: Product used for unknown indication
     Dosage: 20 MG/DAY
     Route: 042
     Dates: start: 20221125, end: 20221127
  7. FUROSEMIDE [Concomitant]
     Active Substance: FUROSEMIDE
     Dosage: 40 MG/DAY
     Route: 042
     Dates: start: 20221128, end: 20221201
  8. FUROSEMIDE [Concomitant]
     Active Substance: FUROSEMIDE
     Dosage: 20 MG/DAY
     Route: 042
     Dates: start: 20221202, end: 20221205
  9. FUROSEMIDE [Concomitant]
     Active Substance: FUROSEMIDE
     Dosage: 60 MG/DAY
     Route: 042
     Dates: start: 20221206, end: 20221206
  10. FUROSEMIDE [Concomitant]
     Active Substance: FUROSEMIDE
     Dosage: 40 MG/DAY
     Route: 042
     Dates: start: 20221207, end: 20221208
  11. FUROSEMIDE [Concomitant]
     Active Substance: FUROSEMIDE
     Dosage: 20 MG/DAY
     Route: 042
     Dates: start: 20221209, end: 20221209
  12. FUROSEMIDE [Concomitant]
     Active Substance: FUROSEMIDE
     Dosage: 20 MG/DAY
     Route: 042
     Dates: start: 20221213, end: 20221213
  13. FUROSEMIDE [Concomitant]
     Active Substance: FUROSEMIDE
     Dosage: 80 MG/DAY
     Route: 042
     Dates: start: 20221214, end: 20221214
  14. FUROSEMIDE [Concomitant]
     Active Substance: FUROSEMIDE
     Dosage: 40 MG/DAY
     Route: 042
     Dates: start: 20221215, end: 20221215
  15. CARPERITIDE [Concomitant]
     Active Substance: CARPERITIDE
     Indication: Cardiac failure
     Dosage: UNK
     Route: 041
     Dates: start: 20221125
  16. CARPERITIDE [Concomitant]
     Active Substance: CARPERITIDE
     Dosage: 3000 MCG/DAY
     Route: 041
     Dates: start: 20221128, end: 20221205
  17. DOBUTAMINE HYDROCHLORIDE [Concomitant]
     Active Substance: DOBUTAMINE HYDROCHLORIDE
     Indication: Cardiac failure
     Dosage: UNK
     Route: 041
     Dates: start: 20221125
  18. DOBUTAMINE HYDROCHLORIDE [Concomitant]
     Active Substance: DOBUTAMINE HYDROCHLORIDE
     Dosage: DETAILS WERE UNKNOWN
     Route: 041
     Dates: start: 20221129, end: 20221215

REACTIONS (4)
  - Cardiac failure congestive [Fatal]
  - Chronic kidney disease [Not Recovered/Not Resolved]
  - Hypernatraemia [Unknown]
  - Product use in unapproved indication [Unknown]

NARRATIVE: CASE EVENT DATE: 20221205
